FAERS Safety Report 6272725-7 (Version None)
Quarter: 2009Q3

REPORT INFORMATION
  Report Type: 
  Country: None (occurrence: None)
  Receive Date: 20090717
  Receipt Date: 20090709
  Transmission Date: 20100115
  Serious: Yes (Hospitalization)
  Sender: FDA-Public Use
  Company Number: PHHY2008MX31549

PATIENT
  Sex: Male

DRUGS (4)
  1. STALEVO 100 [Suspect]
     Indication: PARKINSON'S DISEASE
     Dosage: 2 TABLETS (200/50/12.5 MG)
     Dates: start: 20080101, end: 20081201
  2. STALEVO 100 [Suspect]
     Dosage: 3 TABLETS (200/100/25 MG) PER DAY
     Dates: start: 20081201
  3. ANTIPSYCHOTICS [Suspect]
     Dosage: UNK
     Dates: start: 20081201
  4. DALAY [Concomitant]

REACTIONS (2)
  - DRUG HYPERSENSITIVITY [None]
  - DRUG TOXICITY [None]
